FAERS Safety Report 16127056 (Version 1)
Quarter: 2019Q1

REPORT INFORMATION
  Report Type: Spontaneous
  Country: FR (occurrence: FR)
  Receive Date: 20190328
  Receipt Date: 20190328
  Transmission Date: 20190418
  Serious: Yes (Other)
  Sender: FDA-Public Use
  Company Number: FR-TEVA-2019-FR-1029386

PATIENT
  Age: 42 Year
  Sex: Male

DRUGS (1)
  1. DOXYCYCLINE. [Suspect]
     Active Substance: DOXYCYCLINE
     Indication: MALARIA PROPHYLAXIS
     Dosage: 1 DOSAGE FORMS DAILY;
     Route: 048
     Dates: start: 20181001, end: 20181030

REACTIONS (1)
  - Asthenia [Recovered/Resolved]

NARRATIVE: CASE EVENT DATE: 20181030
